FAERS Safety Report 8896076 (Version 2)
Quarter: 2012Q4

REPORT INFORMATION
  Report Type: 
  Country: AR (occurrence: AR)
  Receive Date: 20121108
  Receipt Date: 20121219
  Transmission Date: 20130627
  Serious: No
  Sender: FDA-Public Use
  Company Number: PHHY2012AR102163

PATIENT
  Sex: Female

DRUGS (2)
  1. EXELON PATCH [Suspect]
     Indication: DEMENTIA ALZHEIMER^S TYPE
     Dosage: 4.6mg/24 hr
     Route: 062
     Dates: start: 201204
  2. EXELON PATCH [Suspect]
     Indication: MEMORY IMPAIRMENT

REACTIONS (2)
  - Therapeutic response decreased [Recovering/Resolving]
  - Amnesia [Recovering/Resolving]
